FAERS Safety Report 8536571-3 (Version None)
Quarter: 2012Q3

REPORT INFORMATION
  Report Type: 
  Country: None (occurrence: None)
  Receive Date: 20120718
  Receipt Date: 20120718
  Transmission Date: 20120928
  Serious: Yes (Other)
  Sender: FDA-Public Use
  Company Number: None

PATIENT
  Sex: Female

DRUGS (3)
  1. LATANOPROST [Suspect]
     Indication: INTRAOCULAR PRESSURE INCREASED
     Dosage: ONCE A DAY INTRAOCULAR
     Route: 031
  2. METOPROLOL TARTRATE [Concomitant]
  3. TIMOLOL MALEATE [Suspect]
     Indication: INTRAOCULAR PRESSURE INCREASED
     Dosage: ONCE A DAY INTRAOCULAR
     Route: 031

REACTIONS (17)
  - NIGHT SWEATS [None]
  - DIZZINESS [None]
  - LYMPHADENOPATHY [None]
  - COUGH [None]
  - FATIGUE [None]
  - BACK DISORDER [None]
  - UNEVALUABLE EVENT [None]
  - CHEST DISCOMFORT [None]
  - HYPERTENSION [None]
  - CONFUSIONAL STATE [None]
  - TENSION [None]
  - CHILLS [None]
  - AMNESIA [None]
  - EYELID PTOSIS [None]
  - SLEEP DISORDER [None]
  - BALANCE DISORDER [None]
  - LUNG DISORDER [None]
